FAERS Safety Report 4360967-7 (Version None)
Quarter: 2004Q2

REPORT INFORMATION
  Report Type: 
  Country: None (occurrence: None)
  Receive Date: 20040517
  Receipt Date: 20040421
  Transmission Date: 20050107
  Serious: Yes (Hospitalization)
  Sender: FDA-Public Use
  Company Number: 2004IC000105

PATIENT
  Age: 71 Year
  Sex: Male

DRUGS (1)
  1. FLUOROURACIL [Suspect]
     Indication: CARCINOMA
     Dosage: 1140 MG; DAILY; INTRAVENOUS
     Route: 042

REACTIONS (3)
  - INFUSION SITE REACTION [None]
  - LYMPHANGITIS [None]
  - WOUND [None]
